FAERS Safety Report 23549432 (Version 1)
Quarter: 2024Q1

REPORT INFORMATION
  Report Type: Spontaneous
  Country: US (occurrence: US)
  Receive Date: 20240221
  Receipt Date: 20240221
  Transmission Date: 20240409
  Serious: Yes (Other)
  Sender: FDA-Public Use
  Company Number: US-BRISTOL-MYERS SQUIBB COMPANY-2024-025457

PATIENT
  Age: 88 Year
  Sex: Female

DRUGS (1)
  1. REVLIMID [Suspect]
     Active Substance: LENALIDOMIDE
     Indication: Plasma cell myeloma
     Dosage: TAKE 1 CAPSULE BY MOUTH ONCE DAILY ON DAYS 1-14 THEN OFF FOR 7 DAYS
     Route: 048

REACTIONS (9)
  - Decreased appetite [Recovering/Resolving]
  - Eating disorder [Unknown]
  - Diarrhoea [Unknown]
  - Fatigue [Unknown]
  - Tremor [Recovering/Resolving]
  - Pain [Unknown]
  - Malignant melanoma [Recovering/Resolving]
  - Gait inability [Recovering/Resolving]
  - Off label use [Unknown]
